FAERS Safety Report 5239142-X (Version None)
Quarter: 2007Q1

REPORT INFORMATION
  Report Type: 
  Country: None (occurrence: None)
  Receive Date: 20070212
  Receipt Date: 20070125
  Transmission Date: 20070707
  Serious: Yes (Hospitalization)
  Sender: FDA-Public Use
  Company Number: 2006JP005439

PATIENT
  Age: 71 Year
  Sex: Female
  Weight: 40 kg

DRUGS (15)
  1. TACROLIMUS CAPSULES (TACROLIMUS CAPSULES) [Suspect]
     Indication: RHEUMATOID ARTHRITIS
     Dosage: SEE IMAGE
     Route: 048
     Dates: start: 20050725, end: 20050731
  2. TACROLIMUS CAPSULES (TACROLIMUS CAPSULES) [Suspect]
     Indication: RHEUMATOID ARTHRITIS
     Dosage: SEE IMAGE
     Route: 048
     Dates: start: 20050801, end: 20050807
  3. TACROLIMUS CAPSULES (TACROLIMUS CAPSULES) [Suspect]
     Indication: RHEUMATOID ARTHRITIS
     Dosage: SEE IMAGE
     Route: 048
     Dates: start: 20050808, end: 20051003
  4. TACROLIMUS CAPSULES (TACROLIMUS CAPSULES) [Suspect]
     Indication: RHEUMATOID ARTHRITIS
     Dosage: SEE IMAGE
     Route: 048
     Dates: start: 20051004, end: 20051120
  5. TACROLIMUS CAPSULES (TACROLIMUS CAPSULES) [Suspect]
     Indication: RHEUMATOID ARTHRITIS
     Dosage: SEE IMAGE
     Route: 048
     Dates: start: 20051121
  6. PREDNISOLONE [Suspect]
     Indication: RHEUMATOID ARTHRITIS
     Dosage: 10 MG, UNKNOWN/D, ORAL
     Route: 048
     Dates: start: 20030814
  7. METHOTREXATE [Suspect]
     Indication: RHEUMATOID ARTHRITIS
     Dosage: 4 MG, WEEKLY, ORAL
     Route: 048
     Dates: start: 20050909
  8. MOBIC [Concomitant]
  9. VOLTAREN [Concomitant]
  10. ALFAROL (ALFACACIDOL) [Concomitant]
  11. CALCIUM LACTATE (CALCIUM LACTATE) [Concomitant]
  12. BENET (RISEDRONATE SODIUM) TABLET [Concomitant]
  13. GASTER [Concomitant]
  14. MUCOSTA (REBAMIPIDE) [Concomitant]
  15. CLARITHROMYCIN [Concomitant]

REACTIONS (4)
  - BRONCHITIS [None]
  - HERPES SIMPLEX [None]
  - HYPERGLYCAEMIA [None]
  - RENAL IMPAIRMENT [None]
